FAERS Safety Report 9631639 (Version 1)
Quarter: 2013Q4

REPORT INFORMATION
  Report Type: Spontaneous
  Country: US (occurrence: None)
  Receive Date: 20131017
  Receipt Date: 20131017
  Transmission Date: 20140711
  Serious: Yes (Life-Threatening, Hospitalization, Other)
  Sender: FDA-Public Use
  Company Number: None

PATIENT
  Age: 73 Year
  Sex: Male
  Weight: 78.5 kg

DRUGS (1)
  1. DEXTROSE/HEPARIN [Suspect]
     Indication: DEEP VEIN THROMBOSIS
     Route: 042
     Dates: start: 20130928, end: 20131005

REACTIONS (2)
  - Thrombocytopenia [None]
  - Heparin-induced thrombocytopenia [None]
